FAERS Safety Report 9687250 (Version 1)
Quarter: 2013Q4

REPORT INFORMATION
  Report Type: Report from Study
  Country: US (occurrence: US)
  Receive Date: 20131113
  Receipt Date: 20131113
  Transmission Date: 20140711
  Serious: Yes (Other)
  Sender: FDA-Public Use
  Company Number: US-ROCHE-1300680

PATIENT
  Age: 68 Year
  Sex: Female

DRUGS (3)
  1. HERCEPTIN [Suspect]
     Indication: BREAST CANCER
     Dosage: NEOADJUVANT HERCEPTIN, ADJUVANT HERCEPTIN
     Route: 065
  2. CYTOXAN [Concomitant]
  3. TAXOTERE [Concomitant]

REACTIONS (1)
  - Renal failure chronic [Unknown]
